FAERS Safety Report 5615564-X (Version None)
Quarter: 2008Q1

REPORT INFORMATION
  Report Type: 
  Country: None (occurrence: None)
  Receive Date: 20080201
  Receipt Date: 20080121
  Transmission Date: 20080703
  Serious: Yes (Death)
  Sender: FDA-Public Use
  Company Number: 2008BI001597

PATIENT
  Age: 19 Year
  Sex: Male

DRUGS (6)
  1. TYSABRI [Suspect]
     Indication: RELAPSING-REMITTING MULTIPLE SCLEROSIS
     Dosage: 300 MG;QW;IV
     Route: 042
     Dates: start: 20071008, end: 20071112
  2. INSULIN [Concomitant]
  3. MS DISEASE MODIFYING [Concomitant]
  4. THERAPIES [Concomitant]
  5. AVONEX [Concomitant]
  6. CYCLOPHOSPHAMIDE [Concomitant]

REACTIONS (3)
  - COMPLETED SUICIDE [None]
  - SUICIDAL IDEATION [None]
  - SUICIDE ATTEMPT [None]
